FAERS Safety Report 5023467-7 (Version None)
Quarter: 2006Q2

REPORT INFORMATION
  Report Type: 
  Country: None (occurrence: None)
  Receive Date: 20060612
  Receipt Date: 20060503
  Transmission Date: 20061013
  Serious: Yes (Other)
  Sender: FDA-Public Use
  Company Number: PHEH2006US05814

PATIENT
  Age: 58 Year
  Sex: Male
  Weight: 87.074 kg

DRUGS (11)
  1. ZOMETA [Suspect]
     Indication: METASTASES TO BONE
     Dosage: Q MONTH
  2. CHEMOTHERAPEUTICS,OTHER [Concomitant]
     Dates: start: 20041201, end: 20050901
  3. ZOLADEX [Concomitant]
     Dosage: Q3MOS; THEN Q4MOS
  4. PENICILLIN [Concomitant]
     Dosage: 500 UNK, 4 X DAY
  5. VITAMINS NOS [Concomitant]
  6. CRESTOR [Concomitant]
     Dosage: 5 MG, QOD
  7. OXYCODONE HCL [Concomitant]
     Dosage: 5/325
  8. CALCIUM GLUCONATE [Concomitant]
  9. MEGESTROL [Concomitant]
     Dosage: 20 MG, DAILY
  10. ACETYLSALICYLIC ACID SRT [Concomitant]
     Dosage: DAILY
  11. CASODEX [Concomitant]
     Dosage: 50 UNK, UNK

REACTIONS (9)
  - ABSCESS JAW [None]
  - GINGIVAL PAIN [None]
  - MANDIBULECTOMY [None]
  - OSTEOMYELITIS [None]
  - OSTEONECROSIS [None]
  - OSTEOSYNTHESIS [None]
  - PAIN IN JAW [None]
  - PRIMARY SEQUESTRUM [None]
  - TOOTH EXTRACTION [None]
